FAERS Safety Report 20696692 (Version 1)
Quarter: 2022Q2

REPORT INFORMATION
  Report Type: Spontaneous
  Country: US (occurrence: None)
  Receive Date: 20220411
  Receipt Date: 20220411
  Transmission Date: 20220721
  Serious: Yes (Other)
  Sender: FDA-Public Use
  Company Number: US-ROCHE-3065326

PATIENT
  Age: 66 Year
  Sex: Male
  Weight: 84.898 kg

DRUGS (7)
  1. RITUXAN [Suspect]
     Active Substance: RITUXIMAB
     Indication: Follicular lymphoma
     Dosage: YES
     Route: 065
     Dates: start: 20220329
  2. OMEPRAZOLE [Concomitant]
     Active Substance: OMEPRAZOLE
     Indication: Hiatus hernia
     Dosage: 1-2 PER DAY AT NIGHT AND SOMETIMES IN THE MORNING
  3. OMEPRAZOLE [Concomitant]
     Active Substance: OMEPRAZOLE
     Indication: Gastrooesophageal reflux disease
  4. ZOLPIDEM [Concomitant]
     Active Substance: ZOLPIDEM TARTRATE
     Indication: Insomnia
     Dosage: 5-10MG EVERY NIGHT ;ONGOING: YES
  5. MELATONIN [Concomitant]
     Active Substance: MELATONIN
     Dosage: 10-20MG ;ONGOING: YES
  6. TYLENOL [Concomitant]
     Active Substance: ACETAMINOPHEN
     Dosage: YES
  7. FLUTICASONE PROPIONATE [Concomitant]
     Active Substance: FLUTICASONE PROPIONATE
     Dosage: YES

REACTIONS (3)
  - Pruritus [Recovered/Resolved]
  - Urticaria [Recovered/Resolved]
  - Hypersensitivity [Unknown]

NARRATIVE: CASE EVENT DATE: 20220329
